FAERS Safety Report 12977234 (Version 2)
Quarter: 2024Q2

REPORT INFORMATION
  Report Type: Spontaneous
  Country: BH (occurrence: BH)
  Receive Date: 20161128
  Receipt Date: 20240427
  Transmission Date: 20240716
  Serious: Yes (Hospitalization, Other)
  Sender: FDA-Public Use
  Company Number: BH-MLMSERVICE-20161108-0484689-1

PATIENT
  Age: 56 Year
  Sex: Male

DRUGS (7)
  1. MYCOPHENOLATE SODIUM [Suspect]
     Active Substance: MYCOPHENOLATE SODIUM
     Indication: Immunosuppressant drug therapy
  2. TACROLIMUS [Suspect]
     Active Substance: TACROLIMUS
     Indication: Immunosuppressant drug therapy
     Dosage: 2 MG AM IN THE MORNING AND 2.5 MG PM IN EVENING
  3. INSULIN GLARGINE [Concomitant]
     Active Substance: INSULIN GLARGINE
     Indication: Hyperglycaemia
     Dosage: BEFORE EACH MEAL
  4. INSULIN ASPART [Concomitant]
     Active Substance: INSULIN ASPART
     Dosage: BEFORE EACH MEAL
  5. INSULIN NOS [Concomitant]
     Active Substance: INSULIN NOS
     Dosage: ALSO RECEIVED AT 17 IU?ALSO AT 14 IU AFTER 4 YEARS OF TRANSPLANT
  6. METFORMIN [Concomitant]
     Active Substance: METFORMIN HYDROCHLORIDE
  7. LIRAGLUTIDE [Concomitant]
     Active Substance: LIRAGLUTIDE

REACTIONS (5)
  - Mouth ulceration [Unknown]
  - Hypertension [Unknown]
  - Neutropenia [Unknown]
  - Respiratory tract infection [Unknown]
  - Chronic kidney disease [Unknown]

NARRATIVE: CASE EVENT DATE: 20120101
